FAERS Safety Report 4282230-5 (Version None)
Quarter: 2004Q1

REPORT INFORMATION
  Report Type: 
  Country: None (occurrence: None)
  Receive Date: 20040107
  Receipt Date: 20031031
  Transmission Date: 20041129
  Serious: Yes (Life-Threatening, Other)
  Sender: FDA-Public Use
  Company Number: 233711

PATIENT
  Age: 61 Year
  Sex: Female
  Weight: 63.5 kg

DRUGS (2)
  1. NOVOLOG [Suspect]
     Indication: DIABETES MELLITUS INSULIN-DEPENDENT
     Dosage: SLIDING SCALE, SUBCUTANEOUS
     Route: 058
     Dates: start: 20030301, end: 20030301
  2. LANTUS [Concomitant]

REACTIONS (1)
  - HYPOGLYCAEMIC COMA [None]
